FAERS Safety Report 6021460-9 (Version None)
Quarter: 2008Q4

REPORT INFORMATION
  Report Type: 
  Country: None (occurrence: None)
  Receive Date: 20081229
  Receipt Date: 20081218
  Transmission Date: 20090506
  Serious: Yes (Death)
  Sender: FDA-Public Use
  Company Number: US-JNJFOC-20081206185

PATIENT
  Age: 58 Year
  Sex: Male

DRUGS (5)
  1. HALOPERIDOL [Suspect]
     Indication: SUICIDE ATTEMPT
     Route: 065
  2. DIPHENHYDRAMINE HCL [Suspect]
     Indication: SUICIDE ATTEMPT
     Route: 065
  3. BUPROPION HCL [Suspect]
     Indication: SUICIDE ATTEMPT
     Route: 048
  4. QUETIAPINE [Suspect]
     Indication: SUICIDE ATTEMPT
     Route: 065
  5. BENZTROPINE MESYLATE [Suspect]
     Indication: SUICIDE ATTEMPT
     Route: 065

REACTIONS (1)
  - DRUG TOXICITY [None]
